FAERS Safety Report 7113502-4 (Version None)
Quarter: 2010Q4

REPORT INFORMATION
  Report Type: 
  Country: None (occurrence: None)
  Receive Date: 20101119
  Receipt Date: 20101118
  Transmission Date: 20110411
  Serious: No
  Sender: FDA-Public Use
  Company Number: US-PFIZER INC-2007091065

PATIENT
  Age: 60 Year
  Sex: Female
  Weight: 58.96 kg

DRUGS (2)
  1. CHANTIX [Suspect]
     Indication: SMOKING CESSATION THERAPY
     Dosage: 1 MG, 2X/DAY
     Route: 048
     Dates: start: 20101025
  2. SEROQUEL [Concomitant]
     Dosage: 100 MG, DAILY

REACTIONS (4)
  - DEPRESSED MOOD [None]
  - DEPRESSION [None]
  - MALAISE [None]
  - PSYCHIATRIC SYMPTOM [None]
